FAERS Safety Report 7270817-7 (Version None)
Quarter: 2011Q1

REPORT INFORMATION
  Report Type: 
  Country: None (occurrence: None)
  Receive Date: 20110202
  Receipt Date: 20110124
  Transmission Date: 20110831
  Serious: Yes (Other)
  Sender: FDA-Public Use
  Company Number: FR-ASTRAZENECA-2010SE23028

PATIENT
  Sex: Female

DRUGS (6)
  1. NAROPIN [Concomitant]
     Indication: ANAESTHESIA
     Dosage: ONCE/SINGLE ADMINISTRATION
     Route: 042
     Dates: start: 20100219, end: 20100219
  2. MORPHINE [Concomitant]
     Indication: ANAESTHESIA
     Route: 042
     Dates: start: 20100219, end: 20100219
  3. TRACRIUM [Suspect]
     Indication: ANAESTHESIA
     Route: 042
     Dates: start: 20100201, end: 20100201
  4. DIPRIVAN [Suspect]
     Indication: ANAESTHESIA
     Route: 042
     Dates: start: 20100219, end: 20100219
  5. SUFENTANIL [Concomitant]
     Indication: ANAESTHESIA
     Route: 042
     Dates: start: 20100219, end: 20100219
  6. DESFLURANE [Concomitant]
     Indication: ANAESTHESIA
     Dates: start: 20100219, end: 20100219

REACTIONS (1)
  - DELIRIUM [None]
